FAERS Safety Report 11876720 (Version 1)
Quarter: 2015Q4

REPORT INFORMATION
  Report Type: Spontaneous
  Country: US (occurrence: US)
  Receive Date: 20151229
  Receipt Date: 20151229
  Transmission Date: 20160305
  Serious: Yes (Other)
  Sender: FDA-Public Use
  Company Number: PHHY2015US169669

PATIENT
  Age: 34 Year
  Sex: Male

DRUGS (1)
  1. LEFLUNOMIDE. [Suspect]
     Active Substance: LEFLUNOMIDE
     Indication: CYTOMEGALOVIRUS VIRAEMIA
     Route: 065

REACTIONS (3)
  - Steatohepatitis [Recovered/Resolved]
  - Liver function test abnormal [Unknown]
  - Off label use [Unknown]
